FAERS Safety Report 9896778 (Version 2)
Quarter: 2014Q1

REPORT INFORMATION
  Report Type: Spontaneous
  Country: US (occurrence: US)
  Receive Date: 20140213
  Receipt Date: 20140213
  Transmission Date: 20141002
  Serious: Yes (Other)
  Sender: FDA-Public Use
  Company Number: US-BRISTOL-MYERS SQUIBB COMPANY-19195122

PATIENT
  Age: 58 Year
  Sex: Female
  Weight: 113 kg

DRUGS (9)
  1. ORENCIA [Suspect]
     Indication: SPONDYLOLYSIS
     Dosage: STRENGHT/DOSE: ^1000MG, 200ML PER TOTAL VOLUME OF 100 ML^
     Route: 042
     Dates: start: 20130808
  2. VITAMIN D [Concomitant]
     Dosage: 1DF=50000 UNIT
  3. MOBIC [Concomitant]
     Route: 048
  4. CYMBALTA [Concomitant]
  5. KOMBIGLYZE XR [Concomitant]
     Dosage: 1DF=2.5-1000 MG
     Route: 048
  6. PRILOSEC [Concomitant]
     Route: 048
  7. REQUIP [Concomitant]
     Route: 048
  8. VICODIN [Concomitant]
     Dosage: 1DF=5-500MG
  9. BYSTOLIC [Concomitant]

REACTIONS (2)
  - Hypersensitivity [Recovered/Resolved]
  - Off label use [Unknown]
